FAERS Safety Report 19899133 (Version 2)
Quarter: 2024Q2

REPORT INFORMATION
  Report Type: Spontaneous
  Country: GB (occurrence: GB)
  Receive Date: 20210930
  Receipt Date: 20240528
  Transmission Date: 20240715
  Serious: Yes (Hospitalization)
  Sender: FDA-Public Use
  Company Number: GB-MHRA-MIDB-1D89F33D-9B61-48CE-98EA-6B66E5812FB0

PATIENT
  Age: 59 Year
  Sex: Male

DRUGS (19)
  1. AMITRIPTYLINE [Suspect]
     Active Substance: AMITRIPTYLINE
     Dosage: ON, ON HOLD
     Route: 065
  2. BACLOFEN [Concomitant]
     Active Substance: BACLOFEN
     Dosage: TIME INTERVAL: 0.33333333 DAYS: ON HOLD
  3. ISPAGHULA EXTRACT\PSYLLIUM [Concomitant]
     Active Substance: HERBALS\PLANTAGO OVATA SEED\PLANTAGO SEED
     Dosage: 3.5 G SACHETS, DURATION: 1 DAY
     Dates: start: 20210920, end: 20210920
  4. LANSOPRAZOLE [Concomitant]
     Active Substance: LANSOPRAZOLE
     Dosage: MORNING
  5. LEVOTHYROXINE [Concomitant]
     Active Substance: LEVOTHYROXINE\LEVOTHYROXINE SODIUM
     Dosage: 100MICROGRAM TABLETS - 100MCG OM, 25MICROGRAM TABLETS - 25MCG OM, 50MICROGRAM TABLETS - 50MCG OM ...
  6. LOPERAMIDE [Concomitant]
     Active Substance: LOPERAMIDE
     Dosage: 1MG/5ML 10 - 20MLS TDS PRN - PATIENT DOESN^T TAKE
     Route: 048
  7. NAPROXEN [Concomitant]
     Active Substance: NAPROXEN
  8. PERINDOPRIL [Concomitant]
     Active Substance: PERINDOPRIL
     Dosage: MORNING
  9. SILDENAFIL [Concomitant]
     Active Substance: SILDENAFIL
     Dosage: TO BE TAKEN AS DIRECTED - NOT TO BE PRESCRIBED IN HOSPITAL
  10. THIAMINE [Concomitant]
     Active Substance: THIAMINE
     Dosage: TIME INTERVAL: 0.33333333 DAYS
  11. CITALOPRAM [Suspect]
     Active Substance: CITALOPRAM\CITALOPRAM HYDROBROMIDE
     Dosage: CITALOPRAM 10MG TABLETS AND 20 MG TABLETS - OD (TOTAL DAILY DOSE 30MG) ON HOLD
     Route: 065
  12. MIRTAZAPINE [Suspect]
     Active Substance: MIRTAZAPINE
     Dosage: ON, ON HOLD
     Route: 065
  13. OLANZAPINE [Suspect]
     Active Substance: OLANZAPINE
     Dosage: ON HOLD
     Route: 065
  14. PREGABALIN [Suspect]
     Active Substance: PREGABALIN
     Dosage: ON HOLD
     Route: 065
  15. PROMETHAZINE HYDROCHLORIDE [Suspect]
     Active Substance: PROMETHAZINE HYDROCHLORIDE
     Dosage: ON, ON HOLD
     Route: 065
  16. TRAMADOL [Suspect]
     Active Substance: TRAMADOL\TRAMADOL HYDROCHLORIDE
     Dosage: 50MG-100MG 4-6HRLY ?TO PERMANENTLY DISCONTINUE
     Route: 065
  17. AMISULPRIDE [Concomitant]
     Active Substance: AMISULPRIDE
  18. AMLODIPINE [Concomitant]
     Active Substance: AMLODIPINE BESYLATE
  19. LANOLIN\LIGHT MINERAL OIL\PARAFFIN [Concomitant]
     Active Substance: LANOLIN\LIGHT MINERAL OIL\PARAFFIN
     Dosage: MDU

REACTIONS (1)
  - Serotonin syndrome [Unknown]
